FAERS Safety Report 6718545-8 (Version None)
Quarter: 2010Q2

REPORT INFORMATION
  Report Type: 
  Country: None (occurrence: None)
  Receive Date: 20100503
  Receipt Date: 20100416
  Transmission Date: 20101027
  Serious: Yes (Hospitalization, Other)
  Sender: FDA-Public Use
  Company Number: 2010000005

PATIENT
  Age: 47 Year
  Sex: Female

DRUGS (4)
  1. ERLOTINIB (ERLOTINIB) (TABLET) (ERLOTINIB) [Suspect]
     Indication: BREAST CANCER METASTATIC
     Dosage: 100 MG, DAYS 5-17 OF 28 DAYS CYCLE, ORAL
     Route: 048
     Dates: start: 20090621, end: 20091123
  2. BEVACIZUMAB [Suspect]
     Indication: BREAST CANCER METASTATIC
     Dosage: 500 MG, INTRAVENOUS
     Route: 042
     Dates: start: 20091208
  3. BENDAMUSTINE (BENDAMUSTINE) [Suspect]
     Indication: BREAST CANCER METASTATIC
     Dosage: MG/M2, INTRAVENOUS
     Route: 042
     Dates: start: 20090616, end: 20091104
  4. PACLITAXEL [Suspect]
     Indication: BREAST CANCER METASTATIC
     Dosage: 135 MG, INTRAVENOUS
     Route: 042
     Dates: start: 20091208

REACTIONS (11)
  - BLOOD IMMUNOGLOBULIN G DECREASED [None]
  - BREAST CANCER METASTATIC [None]
  - BRONCHITIS [None]
  - BRONCHOPNEUMONIA [None]
  - LYMPHOCYTE COUNT DECREASED [None]
  - MALIGNANT NEOPLASM PROGRESSION [None]
  - PNEUMOCYSTIS JIROVECI PNEUMONIA [None]
  - PNEUMONIA [None]
  - PNEUMONIA PRIMARY ATYPICAL [None]
  - PULMONARY OEDEMA [None]
  - WHITE BLOOD CELL COUNT DECREASED [None]
